FAERS Safety Report 4431658-9 (Version None)
Quarter: 2004Q3

REPORT INFORMATION
  Report Type: 
  Country: None (occurrence: None)
  Receive Date: 20040721
  Receipt Date: 20040322
  Transmission Date: 20050211
  Serious: Yes (Life-Threatening)
  Sender: FDA-Public Use
  Company Number: OMPQ-PR-0403S-0203

PATIENT
  Age: 31 Year
  Sex: Female

DRUGS (1)
  1. OMNIPAQUE 180 [Suspect]
     Indication: FIBROUS DYSPLASIA OF BONE
     Dosage: 100 ML, SINGLE DOSE, I.V.
     Route: 042
     Dates: start: 20040319, end: 20040319

REACTIONS (1)
  - ANAPHYLACTIC REACTION [None]
